FAERS Safety Report 9362967 (Version 1)
Quarter: 2013Q2

REPORT INFORMATION
  Report Type: Spontaneous
  Country: US (occurrence: None)
  Receive Date: 20130621
  Receipt Date: 20130621
  Transmission Date: 20140414
  Serious: Yes (Other)
  Sender: FDA-Public Use
  Company Number: None

PATIENT
  Age: 68 Year
  Sex: Male

DRUGS (1)
  1. SUTENT 125MG [Suspect]
     Indication: RENAL CANCER
     Route: 048
     Dates: start: 20130517, end: 20130619

REACTIONS (4)
  - Blister [None]
  - Faeces discoloured [None]
  - Liver disorder [None]
  - Computerised tomogram abnormal [None]
